FAERS Safety Report 6400111-5 (Version None)
Quarter: 2009Q4

REPORT INFORMATION
  Report Type: 
  Country: None (occurrence: None)
  Receive Date: 20091014
  Receipt Date: 20091005
  Transmission Date: 20100525
  Serious: Yes (Life-Threatening, Other)
  Sender: FDA-Public Use
  Company Number: US-ABBOTT-09P-163-0594408-00

PATIENT
  Sex: Female
  Weight: 83.082 kg

DRUGS (5)
  1. SYNTHROID [Suspect]
     Indication: HYPOTHYROIDISM
     Dates: start: 20090101, end: 20090801
  2. SYNTHROID [Suspect]
     Dates: start: 20090801
  3. SYNTHROID [Suspect]
     Dates: end: 20090116
  4. AMBIEN [Concomitant]
     Indication: DRUG USE FOR UNKNOWN INDICATION
  5. ATENOLOL [Concomitant]
     Indication: DRUG USE FOR UNKNOWN INDICATION

REACTIONS (22)
  - ABASIA [None]
  - ALOPECIA [None]
  - BLOOD THYROID STIMULATING HORMONE ABNORMAL [None]
  - CHROMATOPSIA [None]
  - DEPRESSION [None]
  - DIARRHOEA [None]
  - DRY THROAT [None]
  - FALL [None]
  - FLATULENCE [None]
  - HAEMORRHOIDS [None]
  - HEADACHE [None]
  - HEAT EXHAUSTION [None]
  - IMPATIENCE [None]
  - LIBIDO DECREASED [None]
  - MUSCULAR WEAKNESS [None]
  - MYALGIA [None]
  - NAIL DISORDER [None]
  - NERVOUSNESS [None]
  - OSTEOPOROSIS [None]
  - OVERDOSE [None]
  - SUICIDAL IDEATION [None]
  - VISUAL IMPAIRMENT [None]
